FAERS Safety Report 23662530 (Version 1)
Quarter: 2024Q1

REPORT INFORMATION
  Report Type: Spontaneous
  Country: US (occurrence: US)
  Receive Date: 20240322
  Receipt Date: 20240322
  Transmission Date: 20240409
  Serious: No
  Sender: FDA-Public Use
  Company Number: US-ELI_LILLY_AND_COMPANY-US202403012716

PATIENT
  Age: 73 Year
  Sex: Female

DRUGS (1)
  1. TRULICITY [Suspect]
     Active Substance: DULAGLUTIDE
     Indication: Type 2 diabetes mellitus
     Dosage: 0.75 MG, UNKNOWN
     Route: 065
     Dates: start: 202312

REACTIONS (5)
  - Dizziness [Unknown]
  - Somnolence [Unknown]
  - Balance disorder [Unknown]
  - Vision blurred [Unknown]
  - Motion sickness [Unknown]

NARRATIVE: CASE EVENT DATE: 20240201
